FAERS Safety Report 7355389-0 (Version None)
Quarter: 2011Q1

REPORT INFORMATION
  Report Type: 
  Country: None (occurrence: None)
  Receive Date: 20110316
  Receipt Date: 20110315
  Transmission Date: 20110831
  Serious: Yes (Hospitalization)
  Sender: FDA-Public Use
  Company Number: FR-ROCHE-765290

PATIENT
  Sex: Female

DRUGS (9)
  1. RIVOTRIL [Suspect]
     Route: 048
     Dates: start: 20110111, end: 20110120
  2. METFORMINE [Concomitant]
  3. PREVISCAN [Interacting]
     Dosage: START DATE: LONG TERM.
     Route: 048
     Dates: end: 20110117
  4. BISOPROLOL [Concomitant]
  5. STALEVO 100 [Concomitant]
  6. COVERSYL [Concomitant]
  7. DIGOXIN [Concomitant]
  8. SERESTA [Interacting]
     Route: 048
     Dates: start: 20110113, end: 20110120
  9. MADOPAR [Concomitant]

REACTIONS (3)
  - DRUG INTERACTION [None]
  - OVERDOSE [None]
  - INTERNATIONAL NORMALISED RATIO INCREASED [None]
